FAERS Safety Report 6656665-7 (Version None)
Quarter: 2010Q1

REPORT INFORMATION
  Report Type: 
  Country: None (occurrence: None)
  Receive Date: 20100329
  Receipt Date: 20100325
  Transmission Date: 20100710
  Serious: Yes (Other)
  Sender: FDA-Public Use
  Company Number: US-ROXANE LABORATORIES, INC.-2010-RO-00328RO

PATIENT
  Age: 46 Year
  Sex: Female

DRUGS (5)
  1. ONDANSETRON [Suspect]
     Indication: NAUSEA
  2. MIDAZOLAM HCL [Suspect]
     Indication: SEDATION
     Route: 042
  3. FENTANYL [Suspect]
     Indication: SEDATION
  4. PANTOPRAZOLE [Concomitant]
     Indication: GASTRITIS
  5. VALSARTAN/HYDROCHLOROTHIAZIDE [Concomitant]
     Indication: HYPERTENSION

REACTIONS (1)
  - ATRIOVENTRICULAR BLOCK SECOND DEGREE [None]
